FAERS Safety Report 6850217-1 (Version None)
Quarter: 2010Q3

REPORT INFORMATION
  Report Type: 
  Country: None (occurrence: None)
  Receive Date: 20100716
  Receipt Date: 20071010
  Transmission Date: 20110219
  Serious: No
  Sender: FDA-Public Use
  Company Number: US-PFIZER INC-2007086574

PATIENT
  Sex: Female
  Weight: 63.1 kg

DRUGS (1)
  1. CHANTIX [Suspect]
     Indication: SMOKING CESSATION THERAPY
     Dates: start: 20070910, end: 20070930

REACTIONS (14)
  - ABNORMAL WITHDRAWAL BLEEDING [None]
  - AGGRESSION [None]
  - ANGER [None]
  - ANXIETY [None]
  - BACK PAIN [None]
  - CONSTIPATION [None]
  - DEPRESSION [None]
  - FATIGUE [None]
  - FEELING ABNORMAL [None]
  - INSOMNIA [None]
  - IRRITABILITY [None]
  - NAUSEA [None]
  - NIGHTMARE [None]
  - WITHDRAWAL SYNDROME [None]
